FAERS Safety Report 5063424-8 (Version None)
Quarter: 2006Q3

REPORT INFORMATION
  Report Type: 
  Country: None (occurrence: None)
  Receive Date: 20060727
  Receipt Date: 20060725
  Transmission Date: 20061208
  Serious: Yes (Death, Hospitalization)
  Sender: FDA-Public Use
  Company Number: US-AVENTIS-200616169US

PATIENT
  Sex: Female
  Weight: 91 kg

DRUGS (3)
  1. LOVENOX [Suspect]
     Indication: PULMONARY EMBOLISM
     Dosage: FREQUENCY: CONTINUOUS
     Dates: start: 20060721, end: 20060722
  2. LOVENOX [Suspect]
     Indication: CARDIAC FAILURE CONGESTIVE
     Dosage: FREQUENCY: CONTINUOUS
     Dates: start: 20060721, end: 20060722
  3. LOVENOX [Suspect]
     Indication: CHRONIC OBSTRUCTIVE PULMONARY DISEASE
     Dosage: FREQUENCY: CONTINUOUS
     Dates: start: 20060721, end: 20060722

REACTIONS (4)
  - ANAEMIA [None]
  - CARDIOGENIC SHOCK [None]
  - HAEMOGLOBIN DECREASED [None]
  - MUSCLE HAEMORRHAGE [None]
